FAERS Safety Report 17230180 (Version 1)
Quarter: 2020Q1

REPORT INFORMATION
  Report Type: Spontaneous
  Country: ES (occurrence: ES)
  Receive Date: 20200103
  Receipt Date: 20200103
  Transmission Date: 20200409
  Serious: Yes (Life-Threatening)
  Sender: FDA-Public Use
  Company Number: ES-TEVA-2019-ES-1160902

PATIENT
  Age: 85 Year
  Sex: Male

DRUGS (2)
  1. CARBOPLATINO (2323A) [Suspect]
     Active Substance: CARBOPLATIN
     Dates: start: 20181018, end: 20181219
  2. ETOPOSIDO (518A) [Suspect]
     Active Substance: ETOPOSIDE
     Dates: start: 20181018, end: 20181219

REACTIONS (1)
  - Acute myeloid leukaemia [Not Recovered/Not Resolved]

NARRATIVE: CASE EVENT DATE: 20190812
